FAERS Safety Report 24324557 (Version 1)
Quarter: 2024Q3

REPORT INFORMATION
  Report Type: Spontaneous
  Country: US (occurrence: US)
  Receive Date: 20240916
  Receipt Date: 20240916
  Transmission Date: 20241017
  Serious: No
  Sender: PFIZER
  Company Number: US-PFIZER INC-202400256550

PATIENT
  Age: 55 Year
  Sex: Male

DRUGS (1)
  1. OXBRYTA [Suspect]
     Active Substance: VOXELOTOR
     Dosage: 500 MG, CYCLIC 3 TABLETS, ONCE DAILY
     Route: 048
     Dates: start: 20200224

REACTIONS (1)
  - Pain [Not Recovered/Not Resolved]
